FAERS Safety Report 15234417 (Version 2)
Quarter: 2018Q4

REPORT INFORMATION
  Report Type: Report from Study
  Country: None (occurrence: US)
  Receive Date: 20180803
  Receipt Date: 20181008
  Transmission Date: 20190204
  Serious: Yes (Other)
  Sender: FDA-Public Use
  Company Number: US-ABBVIE-18K-163-2436695-00

PATIENT
  Age: 54 Year
  Sex: Female
  Weight: 89.44 kg

DRUGS (6)
  1. HYDROCODONE [Concomitant]
     Active Substance: HYDROCODONE
     Indication: PAIN
     Route: 065
  2. TRAMADOL. [Concomitant]
     Active Substance: TRAMADOL
     Indication: PAIN
     Route: 065
  3. HUMIRA [Suspect]
     Active Substance: ADALIMUMAB
     Indication: RHEUMATOID ARTHRITIS
     Route: 058
     Dates: start: 2014, end: 201601
  4. LEXAPRO [Concomitant]
     Active Substance: ESCITALOPRAM OXALATE
     Indication: DEPRESSION
     Route: 065
  5. HUMIRA [Suspect]
     Active Substance: ADALIMUMAB
     Route: 058
     Dates: start: 201711
  6. NEURONTIN [Concomitant]
     Active Substance: GABAPENTIN
     Indication: PAIN
     Route: 065

REACTIONS (7)
  - Asthenia [Unknown]
  - Systemic lupus erythematosus [Unknown]
  - Meniscus injury [Recovered/Resolved]
  - Intervertebral disc degeneration [Unknown]
  - Fatigue [Unknown]
  - Vertebral osteophyte [Not Recovered/Not Resolved]
  - Arthralgia [Unknown]

NARRATIVE: CASE EVENT DATE: 201601
